FAERS Safety Report 8712834 (Version 3)
Quarter: 2012Q4

REPORT INFORMATION
  Report Type: 
  Country: US (occurrence: US)
  Receive Date: 20120808
  Receipt Date: 20121011
  Transmission Date: 20130627
  Serious: Yes (Death)
  Sender: FDA-Public Use
  Company Number: US-SANOFI-AVENTIS-2012SA054888

PATIENT
  Age: 67 Year
  Sex: Male
  Weight: 89 kg

DRUGS (13)
  1. LASIX [Suspect]
     Indication: HYPERTENSION
     Route: 048
     Dates: start: 20111025, end: 20111105
  2. LEVOTHYROXINE SODIUM [Suspect]
     Indication: HYPOTHYROIDISM
     Dates: end: 20111105
  3. BENZONATATE [Suspect]
     Indication: COUGH
     Route: 065
     Dates: end: 20111105
  4. ASPIRIN [Suspect]
     Indication: CARDIOVASCULAR EVENT PROPHYLAXIS
     Route: 065
     Dates: end: 20111105
  5. POTASSIUM CHLORIDE [Suspect]
     Indication: SUPPLEMENTATION THERAPY
     Route: 065
     Dates: end: 20111105
  6. ZETIA [Suspect]
     Indication: HYPERLIPIDEMIA
     Route: 065
     Dates: end: 20111105
  7. ZOCOR [Suspect]
     Indication: HYPERLIPIDEMIA
     Route: 065
     Dates: end: 20111105
  8. COREG [Suspect]
     Indication: HYPERTENSION
     Dates: end: 20111010
  9. FLUZONE [Suspect]
     Indication: INFLUENZA IMMUNISATION
     Route: 065
     Dates: start: 20111005, end: 20111005
  10. VANCOMYCIN HYDROCHLORIDE [Suspect]
     Route: 065
     Dates: start: 20111015, end: 20111015
  11. LEVOFLOXACIN [Suspect]
     Dosage: 750 mg / D5W
     Route: 065
     Dates: start: 20111015, end: 20111018
  12. MEROPENEM [Suspect]
     Dosage: 1 gram in 50 ml
     Route: 065
     Dates: start: 20111015, end: 20111019
  13. INVESTIGATIONAL DRUG [Concomitant]
     Indication: NON-SMALL CELL LUNG CANCER
     Dates: start: 20110603, end: 20111024

REACTIONS (1)
  - Death [Fatal]
